FAERS Safety Report 7113803-X (Version None)
Quarter: 2010Q4

REPORT INFORMATION
  Report Type: 
  Country: None (occurrence: None)
  Receive Date: 20101119
  Receipt Date: 20101112
  Transmission Date: 20110411
  Serious: Yes (Death, Hospitalization)
  Sender: FDA-Public Use
  Company Number: BR-ACTELION-A-CH2010-39288

PATIENT
  Sex: Female

DRUGS (3)
  1. ZAVESCA [Suspect]
     Indication: NIEMANN-PICK DISEASE
     Dosage: 200 MG, BID
     Route: 048
     Dates: end: 20100819
  2. ZAVESCA [Suspect]
     Dosage: 100 MG, OD
     Route: 048
  3. OXYGEN [Concomitant]

REACTIONS (13)
  - CARDIAC ARREST [None]
  - DECREASED ACTIVITY [None]
  - DIARRHOEA [None]
  - DYSPNOEA [None]
  - HAEMODYNAMIC INSTABILITY [None]
  - HYPERGLYCAEMIA [None]
  - MULTI-ORGAN FAILURE [None]
  - PNEUMONIA [None]
  - RENAL FAILURE [None]
  - RESPIRATORY FAILURE [None]
  - SEPSIS [None]
  - SEPTIC SHOCK [None]
  - TREATMENT NONCOMPLIANCE [None]
